FAERS Safety Report 21097806 (Version 1)
Quarter: 2022Q3

REPORT INFORMATION
  Report Type: Spontaneous
  Country: US (occurrence: US)
  Receive Date: 20220719
  Receipt Date: 20220719
  Transmission Date: 20221027
  Serious: No
  Sender: FDA-Public Use
  Company Number: US-BRISTOL-MYERS SQUIBB COMPANY-2022-067318

PATIENT
  Age: 67 Year
  Sex: Female
  Weight: 58.51 kg

DRUGS (1)
  1. POMALYST [Suspect]
     Active Substance: POMALIDOMIDE
     Indication: Plasma cell myeloma
     Dosage: DAILY 21 DAYS
     Route: 048

REACTIONS (2)
  - Muscle twitching [Unknown]
  - Muscle spasms [Unknown]
